FAERS Safety Report 12381470 (Version 1)
Quarter: 2016Q2

REPORT INFORMATION
  Report Type: Spontaneous
  Country: US (occurrence: US)
  Receive Date: 20160518
  Receipt Date: 20160518
  Transmission Date: 20160815
  Serious: No
  Sender: FDA-Public Use
  Company Number: US-CELGENEUS-USA-2016054072

PATIENT
  Age: 70 Year
  Sex: Female

DRUGS (1)
  1. OTEZLA [Suspect]
     Active Substance: APREMILAST
     Indication: PSORIASIS
     Route: 048

REACTIONS (4)
  - Tinnitus [Recovered/Resolved]
  - Hypertension [Recovered/Resolved]
  - Ear disorder [Recovered/Resolved]
  - Heart rate increased [Recovered/Resolved]
